FAERS Safety Report 16906529 (Version 2)
Quarter: 2019Q4

REPORT INFORMATION
  Report Type: Report from Study
  Country: IT (occurrence: IT)
  Receive Date: 20191011
  Receipt Date: 20191213
  Transmission Date: 20200122
  Serious: Yes (Other)
  Sender: FDA-Public Use
  Company Number: IT-ACCORD-156687

PATIENT
  Age: 75 Year
  Sex: Male
  Weight: 65 kg

DRUGS (6)
  1. GEMCITABINE/GEMCITABINE HYDROCHLORIDE [Suspect]
     Active Substance: GEMCITABINE\GEMCITABINE HYDROCHLORIDE
     Indication: PANCREATIC NEOPLASM
     Dosage: LAST RECEIVED 23-JAN-2019
     Route: 042
     Dates: start: 20180707
  2. GEMCITABINE/GEMCITABINE HYDROCHLORIDE [Suspect]
     Active Substance: GEMCITABINE\GEMCITABINE HYDROCHLORIDE
     Indication: PANCREATIC NEOPLASM
     Dosage: LAST RECEIVED 23-JAN-2019
     Route: 042
     Dates: start: 20180807
  3. GEMCITABINE/GEMCITABINE HYDROCHLORIDE [Suspect]
     Active Substance: GEMCITABINE\GEMCITABINE HYDROCHLORIDE
     Indication: PANCREATIC NEOPLASM
     Dosage: LAST RECEIVED 23-JAN-2019
     Route: 042
     Dates: start: 20180807
  4. ABRAXANE [Suspect]
     Active Substance: PACLITAXEL
     Indication: PANCREATIC NEOPLASM
     Dosage: LAST RECEIVED  23-JAN-2019
     Route: 042
     Dates: start: 20180707
  5. ABRAXANE [Suspect]
     Active Substance: PACLITAXEL
     Indication: PANCREATIC NEOPLASM
     Dosage: LAST RECEIVED  23-JAN-2019
     Route: 042
     Dates: start: 20180807
  6. ABRAXANE [Suspect]
     Active Substance: PACLITAXEL
     Indication: PANCREATIC NEOPLASM
     Dosage: LAST RECEIVED  23-JAN-2019
     Route: 042
     Dates: start: 20180807

REACTIONS (7)
  - Alanine aminotransferase increased [Recovered/Resolved]
  - Vomiting [Recovered/Resolved]
  - Decreased appetite [Recovered/Resolved]
  - Anaemia [Recovered/Resolved]
  - Palmar-plantar erythrodysaesthesia syndrome [Recovered/Resolved]
  - Neurotoxicity [Recovered/Resolved]
  - Asthenia [Recovered/Resolved]

NARRATIVE: CASE EVENT DATE: 20180828
